FAERS Safety Report 5190997-7 (Version None)
Quarter: 2006Q4

REPORT INFORMATION
  Report Type: 
  Country: None (occurrence: None)
  Receive Date: 20061225
  Receipt Date: 20061215
  Transmission Date: 20070319
  Serious: Yes (Other)
  Sender: FDA-Public Use
  Company Number: JP-BAYER-200611285BYL

PATIENT
  Sex: Male

DRUGS (1)
  1. AVELOX [Suspect]
     Indication: PNEUMONIA
     Dosage: TOTAL DAILY DOSE: 400 MG  UNIT DOSE: 400 MG
     Route: 048
     Dates: start: 20061001, end: 20061001

REACTIONS (9)
  - ERYTHEMA [None]
  - LIP SWELLING [None]
  - LIP ULCERATION [None]
  - PALPITATIONS [None]
  - PIGMENTATION DISORDER [None]
  - PRURITUS GENERALISED [None]
  - SCROTAL SWELLING [None]
  - SCROTAL ULCER [None]
  - SKIN EXFOLIATION [None]
